FAERS Safety Report 20314718 (Version 1)
Quarter: 2022Q1

REPORT INFORMATION
  Report Type: Spontaneous
  Country: US (occurrence: None)
  Receive Date: 20220110
  Receipt Date: 20220110
  Transmission Date: 20220423
  Serious: Yes (Hospitalization)
  Sender: FDA-Public Use
  Company Number: 2022A006797

PATIENT
  Sex: Male
  Weight: 88.5 kg

DRUGS (1)
  1. PULMICORT FLEXHALER [Suspect]
     Active Substance: BUDESONIDE
     Indication: COVID-19
     Route: 055
     Dates: start: 2021

REACTIONS (3)
  - COVID-19 [Unknown]
  - Off label use [Not Recovered/Not Resolved]
  - Device delivery system issue [Unknown]
